FAERS Safety Report 15091793 (Version 1)
Quarter: 2018Q2

REPORT INFORMATION
  Report Type: Spontaneous
  Country: US (occurrence: US)
  Receive Date: 20180629
  Receipt Date: 20180629
  Transmission Date: 20180711
  Serious: No
  Sender: FDA-Public Use
  Company Number: US-GALDERMA-US18011795

PATIENT
  Age: 17 Year
  Sex: Male

DRUGS (4)
  1. PROACTIV MD DEEP CLEANSING FACE WASH [Concomitant]
     Active Substance: COSMETICS
     Indication: INFECTION PROPHYLAXIS
     Route: 061
     Dates: start: 20180120, end: 20180126
  2. PROACTIV SOLUTION BLACKHEAD DISSOLVING [Concomitant]
     Active Substance: SALICYLIC ACID
     Indication: INFECTION PROPHYLAXIS
     Route: 061
     Dates: start: 20180120, end: 20180126
  3. PROACTIV SOLUTION DAILY PROTECTION PLUS SUNSCREEN SPF 30 [Suspect]
     Active Substance: AVOBENZONE\HOMOSALATE\OCTINOXATE\OCTISALATE\OXYBENZONE
     Indication: INFECTION PROPHYLAXIS
     Route: 061
     Dates: start: 20180120, end: 20180126
  4. PROACTIV MD ADAPALENE ACNE TREATMENT [Suspect]
     Active Substance: ADAPALENE
     Indication: INFECTION PROPHYLAXIS
     Dosage: 0.1%
     Route: 061
     Dates: start: 20180120, end: 20180126

REACTIONS (4)
  - Skin warm [Recovered/Resolved]
  - Skin discomfort [Recovered/Resolved]
  - Erythema [Recovered/Resolved]
  - Product use in unapproved indication [Recovered/Resolved]

NARRATIVE: CASE EVENT DATE: 20180120
